FAERS Safety Report 7600240-4 (Version None)
Quarter: 2011Q3

REPORT INFORMATION
  Report Type: 
  Country: None (occurrence: None)
  Receive Date: 20110711
  Receipt Date: 20110629
  Transmission Date: 20111222
  Serious: Yes (Hospitalization, Other)
  Sender: FDA-Public Use
  Company Number: US-BAYER-201034762NA

PATIENT
  Age: 41 Year
  Sex: Female
  Weight: 73 kg

DRUGS (4)
  1. NORCO [Concomitant]
     Dosage: 5/325MG
     Route: 048
  2. YAZ [Suspect]
     Indication: CONTRACEPTION
     Dosage: QD
     Route: 048
     Dates: start: 20070501, end: 20091201
  3. FLONASE [Concomitant]
     Indication: MULTIPLE ALLERGIES
     Dosage: 50 MCG/24HR, UNK
     Dates: start: 20081118, end: 20081202
  4. YASMIN [Suspect]
     Indication: CONTRACEPTION
     Dosage: UNK
     Dates: start: 20070501, end: 20091201

REACTIONS (6)
  - GALLBLADDER DISORDER [None]
  - ABDOMINAL PAIN UPPER [None]
  - PROCEDURAL PAIN [None]
  - GALLBLADDER CHOLESTEROLOSIS [None]
  - DYSPEPSIA [None]
  - CHOLECYSTITIS CHRONIC [None]
